FAERS Safety Report 4928425-6 (Version None)
Quarter: 2006Q1

REPORT INFORMATION
  Report Type: 
  Country: None (occurrence: None)
  Receive Date: 20060228
  Receipt Date: 20060221
  Transmission Date: 20060701
  Serious: Yes (Disabling, Other)
  Sender: FDA-Public Use
  Company Number: US-MERCK-0602USA05403

PATIENT
  Sex: Female
  Weight: 109 kg

DRUGS (2)
  1. VIOXX [Suspect]
     Route: 048
     Dates: end: 19990101
  2. VIOXX [Suspect]
     Route: 048
     Dates: end: 19990101

REACTIONS (5)
  - CEREBROVASCULAR ACCIDENT [None]
  - INTRACRANIAL ANEURYSM [None]
  - MYOCARDIAL INFARCTION [None]
  - OVERDOSE [None]
  - THROMBOSIS [None]
